FAERS Safety Report 7241157-7 (Version None)
Quarter: 2011Q1

REPORT INFORMATION
  Report Type: 
  Country: None (occurrence: None)
  Receive Date: 20110120
  Receipt Date: 20110120
  Transmission Date: 20110831
  Serious: Yes (Hospitalization, Disabling)
  Sender: FDA-Public Use
  Company Number: None

PATIENT
  Age: 88 Year
  Sex: Female
  Weight: 78.4723 kg

DRUGS (3)
  1. AMIODARONE HCL [Suspect]
     Dosage: 8 400 MG 2X DAILY BY MOUTH
     Route: 048
     Dates: start: 20101007, end: 20101012
  2. AMIODARONE HCL [Suspect]
     Dosage: 8 400 MG 2X DAILY BY MOUTH
     Route: 048
     Dates: start: 20100504
  3. AMIODARONE HCL [Suspect]
     Dosage: 8 400 MG 2X DAILY BY MOUTH
     Route: 048
     Dates: start: 20101006

REACTIONS (8)
  - MUSCULAR WEAKNESS [None]
  - GAIT DISTURBANCE [None]
  - LOSS OF CONSCIOUSNESS [None]
  - BALANCE DISORDER [None]
  - ASTHENIA [None]
  - SCREAMING [None]
  - FATIGUE [None]
  - FALL [None]
